FAERS Safety Report 21522921 (Version 1)
Quarter: 2022Q4

REPORT INFORMATION
  Report Type: Report from Study
  Country: US (occurrence: US)
  Receive Date: 20221029
  Receipt Date: 20221029
  Transmission Date: 20230112
  Serious: No
  Sender: FDA-Public Use
  Company Number: US-ABBVIE-4180680

PATIENT
  Sex: Female

DRUGS (8)
  1. VENCLEXTA [Suspect]
     Active Substance: VENETOCLAX
     Indication: Acute myeloid leukaemia
     Route: 048
  2. levoFLOXacin Oral Tablet 250 MG [Concomitant]
     Indication: Product used for unknown indication
  3. Prednisone Oral Tablet 20 MG [Concomitant]
     Indication: Product used for unknown indication
  4. Gabapentin Oral Capsule 300 MG [Concomitant]
     Indication: Product used for unknown indication
  5. Prochlorperazine Maleate Oral Table 10 mg [Concomitant]
     Indication: Product used for unknown indication
  6. Ferrous Gluconate Oral Tablet 324 [Concomitant]
     Indication: Product used for unknown indication
  7. Pregabalin Oral Capsule 75 MG [Concomitant]
     Indication: Product used for unknown indication
  8. Methadone HCl Oral Tablet 5 MG [Concomitant]
     Indication: Product used for unknown indication

REACTIONS (2)
  - Head injury [Unknown]
  - Fall [Unknown]
